FAERS Safety Report 13303212 (Version 2)
Quarter: 2017Q1

REPORT INFORMATION
  Report Type: Spontaneous
  Country: US (occurrence: US)
  Receive Date: 20170307
  Receipt Date: 20170328
  Transmission Date: 20170428
  Serious: Yes (Hospitalization, Other)
  Sender: FDA-Public Use
  Company Number: US-009507513-1703USA001720

PATIENT
  Sex: Male

DRUGS (1)
  1. JANUVIA [Suspect]
     Active Substance: SITAGLIPTIN PHOSPHATE
     Dosage: 200 MG, UNK. ROUTE: ENTERAL FEEDING TUBE
     Route: 050

REACTIONS (4)
  - Adverse event [Unknown]
  - Product use issue [Unknown]
  - Gastrointestinal tube insertion [Unknown]
  - Wrong technique in product usage process [Unknown]
